FAERS Safety Report 23924581 (Version 1)
Quarter: 2024Q2

REPORT INFORMATION
  Report Type: Spontaneous
  Country: FR (occurrence: FR)
  Receive Date: 20240531
  Receipt Date: 20240531
  Transmission Date: 20240716
  Serious: Yes (Hospitalization, Disabling, Other)
  Sender: FDA-Public Use
  Company Number: FR-SA-200611626FR

PATIENT
  Age: 19 Year
  Sex: Female
  Weight: 59 kg

DRUGS (9)
  1. ECONAZOLE [Suspect]
     Active Substance: ECONAZOLE
     Indication: Vulvovaginal mycotic infection
     Dosage: UNK
     Route: 065
     Dates: start: 19910529, end: 19910609
  2. MICONAZOLE NITRATE [Suspect]
     Active Substance: MICONAZOLE NITRATE
     Indication: Vulvovaginal mycotic infection
     Dosage: 2 DOSAGE FORM, TWO TIMES A DAY
     Route: 048
     Dates: start: 19910529, end: 19910609
  3. PIPEMIDIC ACID [Suspect]
     Active Substance: PIPEMIDIC ACID
     Indication: Cystitis
     Dosage: UNK
     Route: 065
  4. PIPEMIDIC ACID [Suspect]
     Active Substance: PIPEMIDIC ACID
     Dosage: 1 DOSAGE FORM, TWO TIMES A DAY
     Route: 048
     Dates: start: 19910527, end: 19910606
  5. BIOTONE SURRENAL [Concomitant]
     Indication: Asthenia
     Dosage: UNK
     Route: 065
     Dates: start: 19910529
  6. ETHINYL ESTRADIOL\LEVONORGESTREL [Concomitant]
     Active Substance: ETHINYL ESTRADIOL\LEVONORGESTREL
     Indication: Product used for unknown indication
     Dosage: UNK
     Route: 065
     Dates: start: 19910515
  7. PHENYLBUTAZONE-PIPERAZINE [Concomitant]
     Indication: Product used for unknown indication
     Dosage: UNK
     Route: 065
     Dates: start: 19910515
  8. ACETAMINOPHEN [Concomitant]
     Active Substance: ACETAMINOPHEN
     Indication: Product used for unknown indication
     Dosage: 1 DOSAGE FORM, TWO TIMES A DAY
     Route: 048
     Dates: start: 199105, end: 19910602
  9. UTEPLEX [Concomitant]
     Active Substance: URIDINE 5^-TRIPHOSPHATE SODIUM
     Indication: Product used for unknown indication
     Dosage: UNK
     Route: 065
     Dates: start: 19910515

REACTIONS (20)
  - Graves^ disease [Unknown]
  - Eye disorder [Unknown]
  - Heavy menstrual bleeding [Unknown]
  - Face oedema [Recovered/Resolved with Sequelae]
  - Rash [Recovered/Resolved with Sequelae]
  - Rash vesicular [Recovered/Resolved with Sequelae]
  - Conjunctivitis [Recovered/Resolved with Sequelae]
  - Keratitis [Recovered/Resolved with Sequelae]
  - General physical health deterioration [Recovered/Resolved with Sequelae]
  - Dermatitis bullous [Recovered/Resolved with Sequelae]
  - Symblepharon [Recovered/Resolved with Sequelae]
  - Pyrexia [Recovered/Resolved with Sequelae]
  - Toxic epidermal necrolysis [Recovered/Resolved with Sequelae]
  - Dyspnoea [Recovered/Resolved with Sequelae]
  - Rash erythematous [Recovered/Resolved with Sequelae]
  - Stevens-Johnson syndrome [Recovered/Resolved with Sequelae]
  - Lung disorder [Recovered/Resolved with Sequelae]
  - Corneal neovascularisation [Recovered/Resolved with Sequelae]
  - Product use in unapproved indication [Unknown]
  - Off label use [Unknown]

NARRATIVE: CASE EVENT DATE: 19910529
